FAERS Safety Report 7591904-X (Version None)
Quarter: 2011Q3

REPORT INFORMATION
  Report Type: 
  Country: None (occurrence: None)
  Receive Date: 20110706
  Receipt Date: 20110628
  Transmission Date: 20111222
  Serious: Yes (Hospitalization)
  Sender: FDA-Public Use
  Company Number: JP-ASTELLAS-2011JP003983

PATIENT
  Age: 27 Year
  Sex: Male

DRUGS (2)
  1. MYSER [Suspect]
     Indication: DERMATITIS ATOPIC
     Dosage: UNK
     Route: 061
  2. PROTOPIC [Suspect]
     Indication: DERMATITIS ATOPIC
     Dosage: 0.1 %, UNK
     Route: 061

REACTIONS (1)
  - CELLULITIS [None]
